FAERS Safety Report 11189667 (Version 7)
Quarter: 2018Q4

REPORT INFORMATION
  Report Type: Spontaneous
  Country: US (occurrence: US)
  Receive Date: 20150615
  Receipt Date: 20181113
  Transmission Date: 20190204
  Serious: Yes (Hospitalization)
  Sender: FDA-Public Use
  Company Number: US-DSJP-DSU-2015-113245

PATIENT

DRUGS (2)
  1. BENICAR HCT [Suspect]
     Active Substance: HYDROCHLOROTHIAZIDE\OLMESARTAN MEDOXOMIL
     Indication: HYPERTENSION
     Dosage: 40/25MG
     Route: 048
     Dates: start: 2009, end: 201109
  2. BENICAR [Suspect]
     Active Substance: OLMESARTAN MEDOXOMIL
     Indication: HYPERTENSION
     Dosage: 40 MG, UNK
     Dates: start: 20060703, end: 20080708

REACTIONS (5)
  - Renal cyst [Unknown]
  - Acute kidney injury [Recovered/Resolved]
  - Sprue-like enteropathy [Unknown]
  - Gastrooesophageal reflux disease [Unknown]
  - Diverticulum [Recovering/Resolving]

NARRATIVE: CASE EVENT DATE: 20070312
